FAERS Safety Report 10014560 (Version 1)
Quarter: 2014Q1

REPORT INFORMATION
  Report Type: Report from Study
  Country: US (occurrence: US)
  Receive Date: 20140317
  Receipt Date: 20140317
  Transmission Date: 20141002
  Serious: Yes (Hospitalization)
  Sender: FDA-Public Use
  Company Number: US-SA-2014SA032909

PATIENT
  Age: 69 Year
  Sex: Male

DRUGS (8)
  1. FLUOROURACIL [Suspect]
     Indication: RECTAL CANCER
     Dosage: INFUSION, 2-WEEK CYCLE
     Route: 065
  2. FLUOROURACIL [Suspect]
     Indication: RECTAL CANCER
     Dosage: INFUSION, 2-WEEK CYCLE
     Route: 065
  3. OXALIPLATIN [Suspect]
     Indication: RECTAL CANCER
     Dosage: INFUSION, 2 WEEK CYCLE
     Route: 065
  4. OXALIPLATIN [Suspect]
     Indication: RECTAL CANCER
     Dosage: INFUSION, 2 WEEK CYCLE
     Route: 065
  5. LEUCOVORIN [Suspect]
     Indication: RECTAL CANCER
     Dosage: INFUSION, 2 WEEK CYCLE
     Route: 065
  6. LEUCOVORIN [Suspect]
     Indication: RECTAL CANCER
     Dosage: INFUSION, 2 WEEK CYCLE
     Route: 065
  7. BEVACIZUMAB [Suspect]
     Indication: RECTAL CANCER
     Dosage: INFUSION, 2 WEEK CYCLE
     Route: 065
  8. BEVACIZUMAB [Suspect]
     Indication: RECTAL CANCER
     Dosage: INFUSION, 2 WEEK CYCLE
     Route: 065

REACTIONS (2)
  - Angina pectoris [Unknown]
  - Electrocardiogram ST segment abnormal [Unknown]
